FAERS Safety Report 6448536-6 (Version None)
Quarter: 2009Q4

REPORT INFORMATION
  Report Type: 
  Country: None (occurrence: None)
  Receive Date: 20091120
  Receipt Date: 20091111
  Transmission Date: 20100525
  Serious: Yes (Other)
  Sender: FDA-Public Use
  Company Number: US-JNJFOC-20091008125

PATIENT
  Sex: Female
  Weight: 108.46 kg

DRUGS (5)
  1. REMICADE [Suspect]
     Indication: RHEUMATOID ARTHRITIS
     Route: 042
     Dates: start: 20020205, end: 20090901
  2. METHOTREXATE [Concomitant]
  3. DIGOXIN [Concomitant]
  4. COUMADIN [Concomitant]
     Indication: ATRIAL FIBRILLATION
  5. LASIX [Concomitant]

REACTIONS (1)
  - DIFFUSE LARGE B-CELL LYMPHOMA [None]
